FAERS Safety Report 5252018-7 (Version None)
Quarter: 2007Q1

REPORT INFORMATION
  Report Type: 
  Country: None (occurrence: None)
  Receive Date: 20070223
  Receipt Date: 20070209
  Transmission Date: 20070707
  Serious: Yes (Hospitalization)
  Sender: FDA-Public Use
  Company Number: US019258

PATIENT
  Age: 73 Year
  Sex: Male
  Weight: 91.99 kg

DRUGS (3)
  1. TRISENOX [Suspect]
     Indication: CHRONIC MYELOMONOCYTIC LEUKAEMIA
     Dosage: 0.25 MG/KG QD DAYS 1-5, DAYS 8-12 INTRAVENOUS DRIP
     Route: 041
     Dates: start: 20061206, end: 20061207
  2. CYTARABINE [Concomitant]
  3. HYDREA [Concomitant]

REACTIONS (3)
  - NEPHROLITHIASIS [None]
  - PLATELET COUNT DECREASED [None]
  - RENAL FAILURE [None]
